FAERS Safety Report 18257449 (Version 1)
Quarter: 2020Q3

REPORT INFORMATION
  Report Type: Spontaneous
  Country: US (occurrence: US)
  Receive Date: 20200911
  Receipt Date: 20200911
  Transmission Date: 20201103
  Serious: Yes (Hospitalization)
  Sender: FDA-Public Use
  Company Number: None

PATIENT
  Age: 7 Year
  Sex: Female
  Weight: 33.8 kg

DRUGS (2)
  1. CISPLATIN. [Suspect]
     Active Substance: CISPLATIN
     Dates: end: 20200905
  2. ETOPOSIDE (VP?16) [Suspect]
     Active Substance: ETOPOSIDE
     Dates: end: 20200905

REACTIONS (7)
  - Oropharyngeal pain [None]
  - Upper respiratory tract infection [None]
  - Weight decreased [None]
  - Vomiting [None]
  - Rhinorrhoea [None]
  - Faeces hard [None]
  - Cough [None]

NARRATIVE: CASE EVENT DATE: 20200908
